FAERS Safety Report 12762142 (Version 2)
Quarter: 2016Q3

REPORT INFORMATION
  Report Type: Report from Study
  Country: US (occurrence: US)
  Receive Date: 20160920
  Receipt Date: 20160920
  Transmission Date: 20161109
  Serious: Yes (Hospitalization)
  Sender: FDA-Public Use
  Company Number: US-BAYER-2016-145906

PATIENT
  Age: 34 Year
  Sex: Male

DRUGS (1)
  1. NEXAVAR [Suspect]
     Active Substance: SORAFENIB
     Indication: HEPATOCELLULAR CARCINOMA
     Dosage: 400 MG, BID
     Route: 048
     Dates: start: 20160308

REACTIONS (5)
  - Vomiting [None]
  - Cholelithiasis [None]
  - Abdominal pain [None]
  - Hospitalisation [None]
  - Nausea [None]

NARRATIVE: CASE EVENT DATE: 2016
